FAERS Safety Report 5267676-0 (Version None)
Quarter: 2007Q1

REPORT INFORMATION
  Report Type: 
  Country: None (occurrence: None)
  Receive Date: 20070316
  Receipt Date: 20070306
  Transmission Date: 20070707
  Serious: Yes (Hospitalization)
  Sender: FDA-Public Use
  Company Number: NL-PFIZER INC-2005107657

PATIENT
  Sex: Female

DRUGS (7)
  1. SU-011,248 [Suspect]
     Indication: GASTROINTESTINAL STROMAL TUMOUR
     Route: 048
     Dates: start: 20050701, end: 20050726
  2. PANTOZOL [Concomitant]
     Route: 048
  3. FUROSEMIDE [Concomitant]
     Route: 048
  4. DIHYDRAL [Concomitant]
     Route: 048
  5. MIXTARD HUMAN 70/30 [Concomitant]
  6. CALCICHEW [Concomitant]
     Route: 048
  7. TRIMETHOPRIM [Concomitant]
     Route: 048

REACTIONS (1)
  - ATRIAL FLUTTER [None]
